FAERS Safety Report 23927043 (Version 1)
Quarter: 2024Q2

REPORT INFORMATION
  Report Type: Spontaneous
  Country: FR (occurrence: FR)
  Receive Date: 20240531
  Receipt Date: 20240531
  Transmission Date: 20240716
  Serious: Yes (Death)
  Sender: FDA-Public Use
  Company Number: None

PATIENT
  Age: 79 Year
  Sex: Male
  Weight: 61.4 kg

DRUGS (28)
  1. COTRIMOXAZOLE [Suspect]
     Active Substance: SULFAMETHOXAZOLE\TRIMETHOPRIM
     Indication: Opportunistic infection prophylaxis
     Dosage: COTRIMOXAZOLE TEVA, 800 MG/160 MG
     Route: 048
     Dates: start: 20240307, end: 20240402
  2. METOCLOPRAMIDE HYDROCHLORIDE [Concomitant]
     Active Substance: METOCLOPRAMIDE HYDROCHLORIDE
     Indication: Vomiting
     Dosage: METOCLOPRAMIDE RENAUDIN HYDROCHLORIDE 10 MG/2 ML, SOLUTION FOR INJECTION IN AMPOULE
     Route: 042
     Dates: start: 20240309, end: 20240408
  3. MONTMORILLONITE [Concomitant]
     Active Substance: MONTMORILLONITE
     Indication: Diarrhoea
     Dosage: DIOSMECTITE VIATRIS, POWDER FOR ORAL SUSPENSION IN SACHET
     Route: 048
     Dates: start: 20240309, end: 20240408
  4. VITAMIN K1 [Suspect]
     Active Substance: PHYTONADIONE
     Indication: Vitamin supplementation
     Dosage: 10 MG/1 ML, ORAL AND INJECTABLE SOLUTION
     Route: 042
     Dates: start: 20240402, end: 20240405
  5. VITAMIN K1 [Suspect]
     Active Substance: PHYTONADIONE
     Indication: Vitamin supplementation
     Route: 042
     Dates: start: 20240406, end: 20240408
  6. CHLORHEXIDINE CHLOROBUTANOL [Concomitant]
     Indication: Dry mouth
     Dosage: CHLORHEXIDINE CHLOROBUTANOL ARROW 0.5 ML/0.5 G PER 100 ML, MOUTHWASH SOLUTION IN BOTTLE
     Route: 002
     Dates: start: 20240309, end: 20240408
  7. RACECADOTRIL ARROW [Concomitant]
     Indication: Diarrhoea
     Route: 048
     Dates: start: 20240309, end: 20240408
  8. SODIUM BICARBONATE [Concomitant]
     Active Substance: SODIUM BICARBONATE
     Indication: Dry mouth
     Route: 002
     Dates: start: 20240309, end: 20240408
  9. EPLERENONE [Concomitant]
     Active Substance: EPLERENONE
     Indication: Cardiac failure
     Route: 048
     Dates: start: 20240326, end: 20240408
  10. VENETOCLAX [Concomitant]
     Active Substance: VENETOCLAX
     Indication: Cardiac amyloidosis
     Route: 048
     Dates: start: 20240404, end: 20240408
  11. VENETOCLAX [Concomitant]
     Active Substance: VENETOCLAX
     Indication: Cardiac amyloidosis
     Route: 048
     Dates: start: 20240402, end: 20240402
  12. FASTURTEC [Suspect]
     Active Substance: RASBURICASE
     Indication: Tumour lysis syndrome
     Route: 042
     Dates: start: 20240405, end: 20240405
  13. INNOHEP [Concomitant]
     Active Substance: TINZAPARIN SODIUM
     Indication: Thrombosis prophylaxis
     Dosage: 14,000 IU ANTI-XA/0.7 ML
     Route: 058
     Dates: start: 20240330, end: 20240408
  14. LEUCOVORIN CALCIUM [Concomitant]
     Active Substance: LEUCOVORIN CALCIUM
     Indication: Vitamin supplementation
     Route: 048
     Dates: start: 20240310, end: 20240408
  15. LATANOPROST [Concomitant]
     Active Substance: LATANOPROST
     Indication: Glaucoma
     Route: 065
     Dates: start: 20240319, end: 20240408
  16. RIMIFON [Concomitant]
     Active Substance: ISONIAZID
     Indication: Latent tuberculosis
     Route: 048
     Dates: start: 20240307, end: 20240408
  17. ALFUZOSIN [Concomitant]
     Active Substance: ALFUZOSIN
     Indication: Benign prostatic hyperplasia
     Route: 048
     Dates: end: 20240408
  18. ENTECAVIR ARROW [Concomitant]
     Indication: Opportunistic infection prophylaxis
     Route: 048
     Dates: start: 20240308, end: 20240408
  19. VALSARTAN [Concomitant]
     Active Substance: VALSARTAN
     Indication: Hypertension
     Route: 048
     Dates: end: 20240408
  20. MIDODRINE [Concomitant]
     Active Substance: MIDODRINE
     Indication: Hypotension
     Dosage: MIDODRINE VIATRIS
     Route: 048
     Dates: start: 20240310, end: 20240408
  21. FUROSEMIDE [Concomitant]
     Active Substance: FUROSEMIDE
     Indication: Cardiac failure
     Dosage: 250 MG/25 ML
     Route: 042
     Dates: start: 20240308, end: 20240409
  22. VITAMINE B12 GERDA [Concomitant]
     Indication: Vitamin supplementation
     Dosage: 1000 ?G/4 ML, SOLUTION FOR INJECTION (IM) AND DRINKABLE
     Route: 048
     Dates: start: 20240311, end: 20240408
  23. ACETAMINOPHEN [Suspect]
     Active Substance: ACETAMINOPHEN
     Indication: Pain
     Route: 042
     Dates: start: 20240309, end: 20240407
  24. ACETAMINOPHEN [Suspect]
     Active Substance: ACETAMINOPHEN
     Indication: Pain
     Route: 042
     Dates: start: 20240407, end: 20240407
  25. PANTOPRAZOLE SODIUM [Concomitant]
     Active Substance: PANTOPRAZOLE SODIUM
     Indication: Gastrooesophageal reflux prophylaxis
     Dosage: PANTOPRAZOLE ARROW GENERIC
     Route: 048
     Dates: end: 20240409
  26. CARTEOL [Concomitant]
     Indication: Glaucoma
     Route: 065
     Dates: start: 20240319, end: 20240408
  27. ONDANSETRON [Concomitant]
     Active Substance: ONDANSETRON
     Indication: Vomiting
     Route: 042
     Dates: start: 20240309, end: 20240408
  28. ACUPAN [Concomitant]
     Active Substance: NEFOPAM HYDROCHLORIDE
     Indication: Pain
     Route: 042
     Dates: start: 20240309, end: 20240408

REACTIONS (3)
  - Glucose-6-phosphate dehydrogenase deficiency [Fatal]
  - Contraindicated product prescribed [Recovered/Resolved]
  - Product communication issue [Recovered/Resolved]

NARRATIVE: CASE EVENT DATE: 20240307
